FAERS Safety Report 14179147 (Version 1)
Quarter: 2017Q4

REPORT INFORMATION
  Report Type: Spontaneous
  Country: US (occurrence: US)
  Receive Date: 20171110
  Receipt Date: 20171110
  Transmission Date: 20180321
  Serious: Yes (Hospitalization)
  Sender: FDA-Public Use
  Company Number: US-LPDUSPRD-20171525

PATIENT
  Age: 7 Year
  Sex: Female

DRUGS (12)
  1. RUFINAMIDE [Concomitant]
     Active Substance: RUFINAMIDE
     Dosage: UNKNOWN
     Route: 065
  2. DIAZEPAM. [Concomitant]
     Active Substance: DIAZEPAM
     Dosage: UNKNOWN
     Route: 065
  3. SEVOFLURANE. [Suspect]
     Active Substance: SEVOFLURANE
     Dosage: UNKNOWN
     Route: 065
  4. DESFLURANE. [Suspect]
     Active Substance: DESFLURANE
     Dosage: UNKNOWN
     Route: 065
  5. PROPOFOL. [Suspect]
     Active Substance: PROPOFOL
     Dosage: 2 MG/KG
     Route: 042
  6. DEXAMETHASONE SODIUM PHOSPHATE INJECTION, USP (4901-25) [Suspect]
     Active Substance: DEXAMETHASONE SODIUM PHOSPHATE
     Dosage: 0.1 MG/KG
     Route: 042
  7. NITROUS OXIDE. [Suspect]
     Active Substance: NITROUS OXIDE
     Dosage: UNKNOWN
     Route: 065
  8. ONDANSETRON INJECTION, USP (PRESERVED) (1115-20) [Suspect]
     Active Substance: ONDANSETRON
     Dosage: 0.1 MG/KG
     Route: 042
  9. GLYCOPYRROLATE INJECTION, USP (4601-25) [Suspect]
     Active Substance: GLYCOPYRROLATE
     Dosage: 6 MCG/KG
     Route: 042
  10. NORMAL SALINE [Suspect]
     Active Substance: SODIUM CHLORIDE
     Dosage: 14 ML/KG
     Route: 065
  11. CLONAZEPAM. [Concomitant]
     Active Substance: CLONAZEPAM
     Dosage: UNKNOWN
     Route: 065
  12. KETOROLAC [Suspect]
     Active Substance: KETOROLAC\KETOROLAC TROMETHAMINE
     Dosage: 0.7 MG/KG
     Route: 042

REACTIONS (2)
  - Seizure [Recovered/Resolved]
  - Aspiration [Unknown]
